FAERS Safety Report 7003205-9 (Version None)
Quarter: 2010Q3

REPORT INFORMATION
  Report Type: 
  Country: None (occurrence: None)
  Receive Date: 20100920
  Receipt Date: 20081030
  Transmission Date: 20110219
  Serious: Yes (Other)
  Sender: FDA-Public Use
  Company Number: US-ASTRAZENECA-2008UW13730

PATIENT
  Age: 452 Month
  Sex: Male
  Weight: 104.8 kg

DRUGS (16)
  1. SEROQUEL [Suspect]
     Indication: SLEEP DISORDER
     Route: 048
     Dates: start: 20040916, end: 20041215
  2. SEROQUEL [Suspect]
     Route: 048
     Dates: start: 20050114, end: 20070119
  3. SEROQUEL [Suspect]
     Dosage: 50 MG - 600 MG
     Route: 048
     Dates: start: 20050114
  4. SEROQUEL [Suspect]
     Dosage: 100-200MG/DAY
     Route: 048
     Dates: start: 20070122, end: 20070206
  5. RISPERDAL [Concomitant]
     Dates: start: 20070810, end: 20080228
  6. TEGRETOL [Concomitant]
     Dosage: 200 MG - 400 MG
     Route: 048
     Dates: start: 20040101
  7. CELEXA [Concomitant]
     Dosage: 10 MG - 40 MG
     Route: 048
     Dates: start: 20050517
  8. ATIVAN [Concomitant]
     Route: 048
     Dates: start: 20050517
  9. ASPIRIN [Concomitant]
     Route: 048
     Dates: start: 20050517
  10. PRILOSEC [Concomitant]
     Route: 048
     Dates: start: 20050519
  11. LOVASTATIN [Concomitant]
     Route: 048
     Dates: start: 20070718
  12. CLONAZEPAM [Concomitant]
     Dosage: 0.5 MG - 3 MG
     Route: 048
     Dates: start: 20070202
  13. DESYREL [Concomitant]
     Route: 048
     Dates: start: 20031217
  14. HYDROXYZINE HYDROCHLORIDE [Concomitant]
     Indication: AGITATION
     Dosage: 10 MG/ 5 ML, 50 MG EVERY EIGHT HOURS
     Dates: start: 20070202
  15. HYDROXYZINE HYDROCHLORIDE [Concomitant]
     Indication: INSOMNIA
     Dosage: 10 MG/ 5 ML, 50 MG EVERY EIGHT HOURS
     Dates: start: 20070202
  16. PAXIL [Concomitant]
     Dosage: 20 MG - 30 MG
     Route: 048
     Dates: start: 20031217

REACTIONS (2)
  - DIABETES MELLITUS INADEQUATE CONTROL [None]
  - TYPE 2 DIABETES MELLITUS [None]
